FAERS Safety Report 10670256 (Version 3)
Quarter: 2015Q1

REPORT INFORMATION
  Report Type: Spontaneous
  Country: US (occurrence: US)
  Receive Date: 20141223
  Receipt Date: 20150303
  Transmission Date: 20150720
  Serious: Yes (Death)
  Sender: FDA-Public Use
  Company Number: US-BIOGENIDEC-2014BI131174

PATIENT
  Sex: Male

DRUGS (11)
  1. TECFIDERA [Suspect]
     Active Substance: DIMETHYL FUMARATE
     Indication: MULTIPLE SCLEROSIS
     Route: 048
     Dates: start: 20140729
  2. SOMA [Concomitant]
     Active Substance: CARISOPRODOL
  3. DIAZEPAM. [Concomitant]
     Active Substance: DIAZEPAM
  4. NUVIGIL [Concomitant]
     Active Substance: ARMODAFINIL
  5. OXYCODONE [Concomitant]
     Active Substance: OXYCODONE
  6. TIZANIDINE (TIZANIDINE) [Concomitant]
     Active Substance: TIZANIDINE
  7. ETHANOL [Concomitant]
     Active Substance: ALCOHOL
  8. GABAPENTIN. [Concomitant]
     Active Substance: GABAPENTIN
  9. CITALOPRAM [Concomitant]
     Active Substance: CITALOPRAM HYDROBROMIDE
  10. TECFIDERA [Suspect]
     Active Substance: DIMETHYL FUMARATE
     Indication: MULTIPLE SCLEROSIS
     Route: 048
     Dates: start: 20140722
  11. LEXAPRO [Concomitant]
     Active Substance: ESCITALOPRAM OXALATE

REACTIONS (1)
  - Toxicity to various agents [Fatal]
